FAERS Safety Report 8374466-9 (Version None)
Quarter: 2012Q2

REPORT INFORMATION
  Report Type: 
  Country: None (occurrence: None)
  Receive Date: 20120521
  Receipt Date: 20120511
  Transmission Date: 20120825
  Serious: Yes (Hospitalization, Other)
  Sender: FDA-Public Use
  Company Number: PHHY2012US020781

PATIENT
  Sex: Female
  Weight: 76 kg

DRUGS (3)
  1. JAKAFI [Suspect]
     Dosage: 20 MG, BID
     Route: 048
     Dates: start: 20120223, end: 20120328
  2. WARFARIN SODIUM [Suspect]
     Indication: THROMBOSIS
     Dosage: 7.5 MG, QD
     Route: 065
  3. JAKAFI [Suspect]
     Indication: MYELOFIBROSIS
     Dosage: 5 MG, BID
     Route: 048
     Dates: start: 20120126

REACTIONS (10)
  - MOUTH HAEMORRHAGE [None]
  - FAECES DISCOLOURED [None]
  - PLATELET COUNT INCREASED [None]
  - FATIGUE [None]
  - HAEMOGLOBIN INCREASED [None]
  - EPISTAXIS [None]
  - ASTHENIA [None]
  - HEADACHE [None]
  - PERICARDIAL EFFUSION [None]
  - PLEURAL EFFUSION [None]
